FAERS Safety Report 4505431-7 (Version None)
Quarter: 2004Q4

REPORT INFORMATION
  Report Type: 
  Country: None (occurrence: None)
  Receive Date: 20041018
  Receipt Date: 20040728
  Transmission Date: 20050328
  Serious: Yes (Other)
  Sender: FDA-Public Use
  Company Number: 208122

PATIENT
  Age: 56 Year
  Sex: Female

DRUGS (5)
  1. 150 MG [Suspect]
     Indication: ASTHMA
     Dosage: 375 MG Q4W SUBCUTANEOUS
     Route: 058
     Dates: start: 20040726, end: 20040726
  2. ALLERX (CHLORPHENIRAMINE MALEATE, PSEUDOEPHEDRINE HYDROCHLORIDE SCOPOL [Concomitant]
  3. SINGULAIR [Concomitant]
  4. ADVAIR (FLUTICASONE PROPIONATE, SLAMETEROL XINAFOATE) [Concomitant]
  5. ALBUTEROL (ALBUTEROL SULFATE, ALBUTEROL) [Concomitant]

REACTIONS (1)
  - HYPERSENSITIVITY [None]
